FAERS Safety Report 8030216-7 (Version None)
Quarter: 2011Q4

REPORT INFORMATION
  Report Type: 
  Country: None (occurrence: None)
  Receive Date: 20111130
  Receipt Date: 20110808
  Transmission Date: 20120403
  Serious: Yes (Hospitalization, Other)
  Sender: FDA-Public Use
  Company Number: US201006005984

PATIENT
  Age: 46 Year
  Sex: Male
  Weight: 104.3 kg

DRUGS (8)
  1. BYETTA [Suspect]
     Dosage: 5 UG, BID, SUBCUTANEOUS
     Route: 058
     Dates: start: 20090122
  2. SIMVASTATIN [Concomitant]
  3. TRIAZOLAM [Concomitant]
  4. METFORMIN HCL [Concomitant]
  5. LISINOPRIL [Concomitant]
  6. GLYBURIDE [Concomitant]
  7. EXENATIDE UNK STRENGTH PEN, DISPOSABLE DEVICE (EXENATIDE PEN (UNKNOWN [Concomitant]
  8. FLEXERIL [Concomitant]

REACTIONS (2)
  - PANCREATITIS ACUTE [None]
  - INTENTIONAL DRUG MISUSE [None]
